FAERS Safety Report 4992590-5 (Version None)
Quarter: 2006Q1

REPORT INFORMATION
  Report Type: 
  Country: None (occurrence: None)
  Receive Date: 20060315
  Receipt Date: 20050921
  Transmission Date: 20060701
  Serious: Yes (Other)
  Sender: FDA-Public Use
  Company Number: USA0509108756

PATIENT
  Sex: Male

DRUGS (1)
  1. GEMZAR [Suspect]
     Indication: PANCREATIC CARCINOMA
     Dosage: 800 MG/M2
     Dates: start: 20050101

REACTIONS (1)
  - PLATELET COUNT DECREASED [None]
